FAERS Safety Report 9027906 (Version 1)
Quarter: 2013Q1

REPORT INFORMATION
  Report Type: Spontaneous
  Country: FR (occurrence: FR)
  Receive Date: 20130123
  Receipt Date: 20130123
  Transmission Date: 20140127
  Serious: Yes (Hospitalization)
  Sender: FDA-Public Use
  Company Number: FR-ASTRAZENECA-2013SE03084

PATIENT
  Age: 24431 Day
  Sex: Male

DRUGS (10)
  1. INEXIUM [Suspect]
     Route: 048
     Dates: end: 20111107
  2. PLAVIX [Concomitant]
     Route: 048
  3. MONOTILDIEM [Concomitant]
  4. COVERSYL [Concomitant]
     Route: 048
  5. DIFFU K [Concomitant]
     Route: 048
  6. EZETROL [Concomitant]
     Route: 048
  7. COVARSAL [Concomitant]
     Route: 048
  8. PROCORALAN [Concomitant]
     Route: 048
  9. KALEROID [Concomitant]
  10. DUOPLAVIX [Concomitant]

REACTIONS (6)
  - Hypocalcaemia [Recovered/Resolved]
  - Decreased appetite [Unknown]
  - Hypomagnesaemia [Recovered/Resolved]
  - Hypokalaemia [Unknown]
  - Hiatus hernia [Unknown]
  - Gastric mucosal hypertrophy [Unknown]
